FAERS Safety Report 9302566 (Version 3)
Quarter: 2013Q2

REPORT INFORMATION
  Report Type: Spontaneous
  Country: IT (occurrence: None)
  Receive Date: 20130517
  Receipt Date: 20130604
  Transmission Date: 20140414
  Serious: Yes (Hospitalization)
  Sender: FDA-Public Use
  Company Number: AUR-APL-2013-04108

PATIENT
  Age: 54 Year
  Sex: Female

DRUGS (4)
  1. METFORMIN [Suspect]
     Indication: DIABETES MELLITUS
     Dosage: 1 D
     Route: 048
     Dates: start: 20050101, end: 20130223
  2. SOLOSA (GLIMEPIRIDE) [Concomitant]
  3. EUTIROX (LEVOTHYROXINE SODIUM) [Concomitant]
  4. ENAPREN (ENALAPRIL MALEATE) [Concomitant]

REACTIONS (5)
  - Metabolic acidosis [None]
  - Hypoglycaemia [None]
  - Renal failure acute [None]
  - Blood potassium increased [None]
  - Blood sodium decreased [None]
